FAERS Safety Report 23352638 (Version 2)
Quarter: 2024Q1

REPORT INFORMATION
  Report Type: Report from Study
  Country: CA (occurrence: CA)
  Receive Date: 20231230
  Receipt Date: 20240215
  Transmission Date: 20240410
  Serious: Yes (Other)
  Sender: FDA-Public Use
  Company Number: CA-CELLTRION INC.-2023CA024811

PATIENT

DRUGS (11)
  1. RITUXIMAB [Suspect]
     Active Substance: RITUXIMAB
     Indication: Rheumatoid arthritis
     Route: 042
  2. ALVESCO [Concomitant]
     Active Substance: CICLESONIDE
  3. ATIVAN [Concomitant]
     Active Substance: LORAZEPAM
  4. ATROVENT [Concomitant]
     Active Substance: IPRATROPIUM BROMIDE
     Route: 065
  5. BENADRYL [Concomitant]
     Active Substance: DIPHENHYDRAMINE HYDROCHLORIDE
  6. CORTEF [Concomitant]
     Active Substance: HYDROCORTISONE
  7. COUMADIN [Concomitant]
     Active Substance: WARFARIN SODIUM
  8. DAPSONE [Concomitant]
     Active Substance: DAPSONE
  9. LIPITOR [Concomitant]
     Active Substance: ATORVASTATIN CALCIUM
     Route: 065
  10. MORPHINE [Concomitant]
     Active Substance: MORPHINE
  11. RABEPRAZOLE SODIUM [Concomitant]
     Active Substance: RABEPRAZOLE SODIUM

REACTIONS (10)
  - Arterial disorder [Unknown]
  - Micturition disorder [Unknown]
  - Vascular rupture [Unknown]
  - Insomnia [Unknown]
  - Blister [Unknown]
  - Fatigue [Unknown]
  - Gastrointestinal disorder [Unknown]
  - Hypertension [Unknown]
  - Pain [Unknown]
  - Urticaria [Unknown]
